FAERS Safety Report 22982286 (Version 3)
Quarter: 2023Q4

REPORT INFORMATION
  Report Type: Other
  Country: US (occurrence: None)
  Receive Date: 20230926
  Receipt Date: 20231117
  Transmission Date: 20240110
  Serious: Yes (Hospitalization)
  Sender: FDA-Public Use
  Company Number: US-ROCHE-3272330

PATIENT
  Age: 33 Year
  Sex: Female
  Weight: 127.12 kg

DRUGS (8)
  1. OCREVUS [Suspect]
     Active Substance: OCRELIZUMAB
     Indication: Relapsing-remitting multiple sclerosis
     Dosage: DRUG STARTED + STOPPED PRIOR TO THE LMP (LAST MENSTRUAL PERIOD),
     Route: 065
     Dates: start: 20221007, end: 20221007
  2. OCREVUS [Suspect]
     Active Substance: OCRELIZUMAB
     Route: 065
     Dates: start: 20221108, end: 20221108
  3. ASPIRIN [Concomitant]
     Active Substance: ASPIRIN
     Dates: start: 20230213
  4. ATIVAN [Concomitant]
     Active Substance: LORAZEPAM
     Route: 048
     Dates: start: 20210716
  5. DICLEGIS [Concomitant]
     Active Substance: DOXYLAMINE SUCCINATE\PYRIDOXINE HYDROCHLORIDE
     Dates: start: 20230112
  6. EPIPEN [Concomitant]
     Active Substance: EPINEPHRINE
     Dates: start: 20220808
  7. ONDANSETRON [Concomitant]
     Active Substance: ONDANSETRON
     Dosage: EVERY 8 HOURS PRN
     Route: 048
     Dates: start: 20230210
  8. VITAMIN D3 [Concomitant]
     Active Substance: CHOLECALCIFEROL
     Dosage: 5,000 UNITS
     Route: 048
     Dates: start: 20210128

REACTIONS (3)
  - Pre-eclampsia [Recovered/Resolved]
  - Gestational diabetes [Recovered/Resolved]
  - Maternal exposure before pregnancy [Unknown]

NARRATIVE: CASE EVENT DATE: 20230318
